FAERS Safety Report 5613118-2 (Version None)
Quarter: 2008Q1

REPORT INFORMATION
  Report Type: 
  Country: None (occurrence: None)
  Receive Date: 20080129
  Receipt Date: 20080115
  Transmission Date: 20080703
  Serious: Yes (Hospitalization)
  Sender: FDA-Public Use
  Company Number: 231439J07USA

PATIENT
  Age: 61 Year
  Sex: Female

DRUGS (7)
  1. REBIF [Suspect]
     Indication: MULTIPLE SCLEROSIS
     Dosage: 44 MCG, 3 IN 1 WEEKS, SUBCUTANEOUS
     Route: 058
     Dates: start: 20030625
  2. MOTRIN [Concomitant]
  3. OXYBUTYNIN               (OXYBUTYNIN /00538901/) [Concomitant]
  4. IMIPRAMINE         (IMIPRAMINE /0053901/ [Concomitant]
  5. BACLOFEN [Concomitant]
  6. ATENOLOL [Concomitant]
  7. PROVIGIL [Concomitant]

REACTIONS (5)
  - BALANCE DISORDER [None]
  - FALL [None]
  - INJECTION SITE ERYTHEMA [None]
  - INJECTION SITE REACTION [None]
  - SPINAL FRACTURE [None]
